FAERS Safety Report 9823012 (Version 2)
Quarter: 2014Q1

REPORT INFORMATION
  Report Type: Report from Study
  Country: US (occurrence: US)
  Receive Date: 20140116
  Receipt Date: 20140122
  Transmission Date: 20141002
  Serious: Yes (Other)
  Sender: FDA-Public Use
  Company Number: US-BAXTER-2014BAX001272

PATIENT
  Age: 71 Year
  Sex: Female
  Weight: 83.46 kg

DRUGS (4)
  1. GAMMAGARD LIQUID [Suspect]
     Indication: IMMUNODEFICIENCY COMMON VARIABLE
     Route: 042
     Dates: start: 20131219
  2. GAMMAGARD LIQUID [Suspect]
     Route: 058
     Dates: start: 20131114, end: 20131212
  3. GAMMAGARD LIQUID [Suspect]
     Route: 042
     Dates: start: 20131114, end: 20131212
  4. HIZENTRA [Concomitant]
     Indication: PRODUCT USED FOR UNKNOWN INDICATION

REACTIONS (5)
  - Pruritus generalised [Recovered/Resolved]
  - Burning sensation [Recovered/Resolved]
  - Myalgia [Recovered/Resolved]
  - Depression [Recovered/Resolved]
  - Fatigue [Recovered/Resolved]
